FAERS Safety Report 4902403-5 (Version None)
Quarter: 2006Q1

REPORT INFORMATION
  Report Type: 
  Country: None (occurrence: None)
  Receive Date: 20060202
  Receipt Date: 20060202
  Transmission Date: 20060701
  Serious: Yes (Hospitalization, Other)
  Sender: FDA-Public Use
  Company Number: None

PATIENT
  Sex: Female
  Weight: 61.1 kg

DRUGS (7)
  1. CISPLATIN [Suspect]
     Indication: CERVIX CARCINOMA
     Dosage: 98 MG
     Route: 042
     Dates: start: 20051012, end: 20051019
  2. CETUXIMAB ERBITUX;MOAB CC25 CHIMERIC MONOCLONAL ANTIBODY) [Suspect]
     Dosage: 1222.5 MG
     Route: 042
     Dates: start: 20051012, end: 20051026
  3. HALDOL [Concomitant]
  4. MS CONTIN [Concomitant]
  5. MORPHINE [Concomitant]
  6. SENNA [Concomitant]
  7. ZOFRAN [Concomitant]

REACTIONS (2)
  - DYSURIA [None]
  - URINARY RETENTION [None]
